FAERS Safety Report 6287781-X (Version None)
Quarter: 2009Q3

REPORT INFORMATION
  Report Type: 
  Country: None (occurrence: None)
  Receive Date: 20090729
  Receipt Date: 20070614
  Transmission Date: 20100115
  Serious: Yes (Other)
  Sender: FDA-Public Use
  Company Number: US-ASTRAZENECA-2006UW25965

PATIENT
  Age: 28131 Day
  Sex: Female

DRUGS (7)
  1. SEROQUEL [Suspect]
     Indication: DEPRESSION
     Dosage: 100-600 MG
     Route: 048
     Dates: start: 20040429
  2. ZYPREXA [Concomitant]
  3. SINGULAIR [Concomitant]
     Dosage: DAILY
     Dates: start: 20060125
  4. DIOVAN [Concomitant]
     Dates: start: 20060125
  5. LEVOXYL [Concomitant]
     Dates: start: 20060125
  6. STARLIX [Concomitant]
     Dates: start: 20060125
  7. DILANTIN [Concomitant]
     Dates: start: 20060125

REACTIONS (2)
  - DIABETIC NEUROPATHY [None]
  - TYPE 2 DIABETES MELLITUS [None]
